FAERS Safety Report 7954458-1 (Version None)
Quarter: 2011Q4

REPORT INFORMATION
  Report Type: 
  Country: None (occurrence: None)
  Receive Date: 20111202
  Receipt Date: 20111123
  Transmission Date: 20120403
  Serious: Yes (Other)
  Sender: FDA-Public Use
  Company Number: US-JNJFOC-20111111394

PATIENT
  Sex: Female
  Weight: 72.58 kg

DRUGS (3)
  1. REMICADE [Suspect]
     Indication: FIBROMYALGIA
     Route: 042
  2. REMICADE [Suspect]
     Indication: RHEUMATOID ARTHRITIS
     Route: 042
  3. REMICADE [Suspect]
     Indication: ANKYLOSING SPONDYLITIS
     Route: 042

REACTIONS (3)
  - MUSCULOSKELETAL STIFFNESS [None]
  - WEIGHT INCREASED [None]
  - EYE INFECTION [None]
